FAERS Safety Report 7778108-2 (Version None)
Quarter: 2011Q3

REPORT INFORMATION
  Report Type: 
  Country: None (occurrence: None)
  Receive Date: 20110922
  Receipt Date: 20110913
  Transmission Date: 20111222
  Serious: Yes (Hospitalization)
  Sender: FDA-Public Use
  Company Number: GER/UKI/11/0021142

PATIENT
  Age: 79 Year
  Sex: Male

DRUGS (11)
  1. CLOPIDOGREL [Suspect]
     Indication: PRODUCT USED FOR UNKNOWN INDICATION
     Dosage: 75 MG, 1 IN 1 D
     Dates: start: 20110820, end: 20110901
  2. FUROSEMIDE [Concomitant]
  3. ASPIRIN [Concomitant]
  4. RAMIPRIL [Concomitant]
  5. SIMVASTATIN [Concomitant]
  6. HUMULIN M3 INSULIN (HUMAN MIXTARD) [Concomitant]
  7. DIGOXIN [Concomitant]
  8. AMLODIPINE [Concomitant]
  9. ACETAMINOPHEN [Concomitant]
  10. CLINDAMYCIN [Concomitant]
  11. BISOPROLOL FUMARATE [Concomitant]

REACTIONS (2)
  - RASH PRURITIC [None]
  - LEUKOCYTOCLASTIC VASCULITIS [None]
